FAERS Safety Report 23828630 (Version 1)
Quarter: 2024Q2

REPORT INFORMATION
  Report Type: Report from Study
  Country: NL (occurrence: NL)
  Receive Date: 20240508
  Receipt Date: 20240508
  Transmission Date: 20240716
  Serious: Yes (Hospitalization, Other)
  Sender: FDA-Public Use
  Company Number: NL-MYLANLABS-2024M1040004

PATIENT
  Sex: Female

DRUGS (1)
  1. CREON [Suspect]
     Active Substance: PANCRELIPASE AMYLASE\PANCRELIPASE LIPASE\PANCRELIPASE PROTEASE
     Indication: Product used for unknown indication
     Dosage: 25.0000, QD (1-8 X PER DAY)
     Route: 048
     Dates: start: 20210928

REACTIONS (4)
  - Bacterial infection [Recovering/Resolving]
  - Pancreatic disorder [Recovering/Resolving]
  - Pneumonia bacterial [Recovering/Resolving]
  - Bacteraemia [Recovering/Resolving]
